FAERS Safety Report 24211868 (Version 1)
Quarter: 2024Q3

REPORT INFORMATION
  Report Type: Report from Study
  Country: CA (occurrence: CA)
  Receive Date: 20240814
  Receipt Date: 20240814
  Transmission Date: 20241016
  Serious: Yes (Other)
  Sender: NOVARTIS
  Company Number: CA-002147023-NVSC2024CA161836

PATIENT
  Sex: Female

DRUGS (1)
  1. KESIMPTA [Suspect]
     Active Substance: OFATUMUMAB
     Indication: Relapsing-remitting multiple sclerosis
     Dosage: 20 MG, QMO
     Route: 058
     Dates: start: 20220413

REACTIONS (5)
  - Expanded disability status scale score increased [Unknown]
  - Diarrhoea [Unknown]
  - Limb discomfort [Unknown]
  - Muscle spasms [Unknown]
  - Muscle tightness [Unknown]
